FAERS Safety Report 20755980 (Version 1)
Quarter: 2022Q2

REPORT INFORMATION
  Report Type: Spontaneous
  Country: TG (occurrence: TG)
  Receive Date: 20220427
  Receipt Date: 20220427
  Transmission Date: 20220721
  Serious: Yes (Hospitalization, Disabling)
  Sender: FDA-Public Use
  Company Number: TG-STRIDES ARCOLAB LIMITED-2022SP004541

PATIENT
  Age: 6 Year
  Sex: Male

DRUGS (4)
  1. DEXAMETHASONE [Suspect]
     Active Substance: DEXAMETHASONE
     Indication: Staphylococcal infection
     Dosage: UNK
     Route: 065
  2. CEFTAZIDIME [Suspect]
     Active Substance: CEFTAZIDIME
     Indication: Staphylococcal infection
     Dosage: 1 GRAM, UNK
     Route: 030
  3. BETAMETHASONE [Suspect]
     Active Substance: BETAMETHASONE
     Indication: Staphylococcal infection
     Dosage: 4 MILLIGRAM, UNK
     Route: 030
  4. CEFTRIAXONE [Suspect]
     Active Substance: CEFTRIAXONE
     Indication: Staphylococcal infection
     Dosage: 1 GRAM, ON THE RIGHT THIGH
     Route: 065

REACTIONS (2)
  - Embolia cutis medicamentosa [Recovered/Resolved]
  - Off label use [Unknown]
